FAERS Safety Report 20196021 (Version 1)
Quarter: 2021Q4

REPORT INFORMATION
  Report Type: Spontaneous
  Country: FR (occurrence: FR)
  Receive Date: 20211216
  Receipt Date: 20211216
  Transmission Date: 20220303
  Serious: Yes (Hospitalization)
  Sender: FDA-Public Use
  Company Number: None

PATIENT
  Age: 23 Year
  Sex: Male

DRUGS (9)
  1. PREGABALIN [Suspect]
     Active Substance: PREGABALIN
     Dosage: 20 CAPSULES ANNOUNCED
     Route: 048
     Dates: start: 20211120, end: 20211120
  2. PREGABALIN [Suspect]
     Active Substance: PREGABALIN
     Dosage: 4 CAPSULES DECLARED
     Route: 048
     Dates: start: 20211125, end: 20211125
  3. PREGABALIN [Suspect]
     Active Substance: PREGABALIN
     Dosage: 2 BOXES ANNOUNCED (AT LEAST 56 CAPSULES CONFIRMED)
     Route: 048
     Dates: start: 20211126, end: 20211126
  4. CANNABIS SATIVA SUBSP. INDICA TOP [Suspect]
     Active Substance: CANNABIS SATIVA SUBSP. INDICA TOP
     Dosage: SEVERAL JOINTS/DAY
     Route: 055
  5. DIAZEPAM [Suspect]
     Active Substance: DIAZEPAM
     Dosage: UNK
     Route: 048
  6. COCAINE [Suspect]
     Active Substance: COCAINE
     Dosage: 1 G DECLARED
     Dates: start: 20211102, end: 20211102
  7. CLONAZEPAM [Suspect]
     Active Substance: CLONAZEPAM
     Dosage: UNK
     Route: 048
  8. PRAZEPAM [Suspect]
     Active Substance: PRAZEPAM
     Dosage: 20 TABLETS DECLARED
     Route: 048
     Dates: start: 20211119, end: 20211119
  9. TRIMEPRAZINE [Concomitant]
     Active Substance: TRIMEPRAZINE
     Dosage: UNK
     Route: 048

REACTIONS (2)
  - Intentional product misuse [Unknown]
  - Poisoning deliberate [Recovered/Resolved]
